FAERS Safety Report 9608511 (Version 1)
Quarter: 2013Q4

REPORT INFORMATION
  Report Type: Spontaneous
  Country: NE (occurrence: None)
  Receive Date: 20131007
  Receipt Date: 20131007
  Transmission Date: 20140711
  Serious: Yes (Hospitalization, Other)
  Sender: FDA-Public Use
  Company Number: NSR_01266_2013

PATIENT
  Age: 25 Year
  Sex: 0

DRUGS (2)
  1. TRAMADOL [Suspect]
     Indication: PRODUCT USED FOR UNKNOWN INDICATION
     Dosage: 2400 MG (CONSUMED PRIOR TO SEIZURE)
  2. CAFFEINE [Suspect]
     Indication: PRODUCT USED FOR UNKNOWN INDICATION
     Dosage: DF

REACTIONS (6)
  - Postictal state [None]
  - Coma [None]
  - Drug dependence [None]
  - Epilepsy [None]
  - Incorrect dose administered [None]
  - Drug interaction [None]
